FAERS Safety Report 6975672-8 (Version None)
Quarter: 2010Q3

REPORT INFORMATION
  Report Type: 
  Country: None (occurrence: None)
  Receive Date: 20100910
  Receipt Date: 20100907
  Transmission Date: 20110219
  Serious: Yes (Hospitalization)
  Sender: FDA-Public Use
  Company Number: US-RB-014895-10

PATIENT
  Age: 38 Year
  Sex: Female

DRUGS (3)
  1. SUBOXONE [Suspect]
     Indication: DRUG DEPENDENCE
     Route: 060
     Dates: start: 20080801
  2. COUMADIN [Concomitant]
     Indication: FACTOR V LEIDEN MUTATION
     Dosage: DOSING DETAILS UNKNOWN
     Route: 065
  3. HEPARIN [Concomitant]
     Indication: FACTOR V LEIDEN MUTATION
     Dosage: UNKNOWN DOSING DETAILS
     Route: 065

REACTIONS (3)
  - ARTHRALGIA [None]
  - CARPAL TUNNEL SYNDROME [None]
  - MENORRHAGIA [None]
